FAERS Safety Report 12400342 (Version 2)
Quarter: 2019Q1

REPORT INFORMATION
  Report Type: Spontaneous
  Country: DE (occurrence: DE)
  Receive Date: 20160525
  Receipt Date: 20190222
  Transmission Date: 20190417
  Serious: Yes (Other)
  Sender: FDA-Public Use
  Company Number: DE-AUROBINDO-AUR-APL-2016-06284

PATIENT

DRUGS (1)
  1. CEFUROXIME 500 MG FILM COATED TABLET [Suspect]
     Active Substance: CEFUROXIME SODIUM
     Indication: RESPIRATORY TRACT INFECTION BACTERIAL
     Dosage: 500 MG, TWO TIMES A DAY
     Route: 048
     Dates: start: 201605, end: 201605

REACTIONS (1)
  - Delirium [Recovered/Resolved]

NARRATIVE: CASE EVENT DATE: 20160508
